FAERS Safety Report 22308134 (Version 3)
Quarter: 2023Q2

REPORT INFORMATION
  Report Type: Spontaneous
  Country: NZ (occurrence: NZ)
  Receive Date: 20230511
  Receipt Date: 20230612
  Transmission Date: 20230721
  Serious: Yes (Death)
  Sender: FDA-Public Use
  Company Number: NZ-MYLANLABS-2023M1049128

PATIENT
  Age: 77 Year
  Sex: Male

DRUGS (3)
  1. CLOZARIL [Suspect]
     Active Substance: CLOZAPINE
     Indication: Schizophrenia
     Dosage: UNK
     Route: 048
     Dates: start: 20220825
  2. CLOZARIL [Suspect]
     Active Substance: CLOZAPINE
     Indication: Agitation
     Dosage: 25 MILLIGRAM QD (25MG NOCTE [NIGHT])
     Route: 048
     Dates: start: 20220831, end: 20230428
  3. CLOZARIL [Suspect]
     Active Substance: CLOZAPINE
     Indication: Psychotic disorder

REACTIONS (3)
  - Pneumonia aspiration [Fatal]
  - Neutrophil count increased [Recovered/Resolved]
  - Lymphocyte count decreased [Unknown]

NARRATIVE: CASE EVENT DATE: 20230411
